FAERS Safety Report 19366645 (Version 1)
Quarter: 2021Q2

REPORT INFORMATION
  Report Type: Spontaneous
  Country: US (occurrence: US)
  Receive Date: 20210603
  Receipt Date: 20210603
  Transmission Date: 20210717
  Serious: Yes (Life-Threatening, Hospitalization)
  Sender: FDA-Public Use
  Company Number: US-TEVA-2021-US-1917549

PATIENT
  Age: 67 Year
  Sex: Female

DRUGS (3)
  1. HYDROMORPHONE [Suspect]
     Active Substance: HYDROMORPHONE
     Indication: INDUCTION OF ANAESTHESIA
     Dosage: RECEIVED 0.8 (UNIT NOT STATED)
     Route: 065
  2. VECURONIUM [Suspect]
     Active Substance: VECURONIUM BROMIDE
     Indication: INDUCTION OF ANAESTHESIA
     Route: 065
  3. FENTANYL. [Suspect]
     Active Substance: FENTANYL
     Indication: INDUCTION OF ANAESTHESIA
     Route: 065

REACTIONS (5)
  - Somnolence [Recovering/Resolving]
  - Hypoxia [Unknown]
  - Sleep apnoea syndrome [Unknown]
  - Mental status changes [Recovering/Resolving]
  - Hypotension [Unknown]
